FAERS Safety Report 19478209 (Version 1)
Quarter: 2021Q2

REPORT INFORMATION
  Report Type: Spontaneous
  Country: US (occurrence: US)
  Receive Date: 20210630
  Receipt Date: 20210630
  Transmission Date: 20210717
  Serious: Yes (Other)
  Sender: FDA-Public Use
  Company Number: US-PFIZER INC-2021725474

PATIENT
  Age: 75 Year
  Sex: Female

DRUGS (2)
  1. IBRANCE [Suspect]
     Active Substance: PALBOCICLIB
     Indication: SARCOMA
     Dosage: 125 MG [X 8 DAYS]
     Dates: start: 20210525
  2. IBRANCE [Suspect]
     Active Substance: PALBOCICLIB
     Dosage: 100 MG, CYCLIC [1 DAILY FOR 21 DAYS]
     Route: 048
     Dates: start: 20210525

REACTIONS (9)
  - Off label use [Unknown]
  - Neuropathy peripheral [Unknown]
  - Constipation [Unknown]
  - Sinusitis [Unknown]
  - Fatigue [Unknown]
  - Decreased appetite [Unknown]
  - Alopecia [Unknown]
  - White blood cell count decreased [Unknown]
  - Pruritus [Unknown]
